FAERS Safety Report 13386204 (Version 1)
Quarter: 2017Q1

REPORT INFORMATION
  Report Type: Spontaneous
  Country: US (occurrence: US)
  Receive Date: 20170330
  Receipt Date: 20170330
  Transmission Date: 20170429
  Serious: No
  Sender: FDA-Public Use
  Company Number: US-ASTRAZENECA-2017SE31744

PATIENT
  Sex: Male
  Weight: 96.2 kg

DRUGS (1)
  1. BYETTA [Suspect]
     Active Substance: EXENATIDE
     Indication: BLOOD GLUCOSE ABNORMAL
     Route: 058
     Dates: start: 20170323

REACTIONS (5)
  - Blood glucose decreased [Unknown]
  - Product use issue [Unknown]
  - Product quality issue [Unknown]
  - Abdominal discomfort [Unknown]
  - Off label use [Unknown]
